FAERS Safety Report 8236919-3 (Version None)
Quarter: 2012Q1

REPORT INFORMATION
  Report Type: 
  Country: None (occurrence: None)
  Receive Date: 20120327
  Receipt Date: 20120319
  Transmission Date: 20120608
  Serious: Yes (Death)
  Sender: FDA-Public Use
  Company Number: JP-UCBSA-053681

PATIENT
  Age: 78 Year
  Sex: Male

DRUGS (2)
  1. PHENYTOIN SODIUM CAP [Concomitant]
     Indication: SIMPLE PARTIAL SEIZURES
     Dosage: DAILY DOSE: 200 MG
     Route: 048
     Dates: end: 20120104
  2. KEPPRA [Suspect]
     Indication: SIMPLE PARTIAL SEIZURES
     Dosage: AFTER MEAL
     Route: 048
     Dates: start: 20111109, end: 20120104

REACTIONS (1)
  - DEATH [None]
